FAERS Safety Report 13848754 (Version 1)
Quarter: 2017Q3

REPORT INFORMATION
  Report Type: Spontaneous
  Country: CA (occurrence: CA)
  Receive Date: 20170809
  Receipt Date: 20170809
  Transmission Date: 20171127
  Serious: Yes (Other)
  Sender: FDA-Public Use
  Company Number: CA-TEVA-793645ACC

PATIENT
  Age: 68 Year
  Sex: Male
  Weight: 72.64 kg

DRUGS (2)
  1. AMLODIPINE [Suspect]
     Active Substance: AMLODIPINE BESYLATE
     Indication: HYPERTENSION
     Dosage: 10 MILLIGRAM DAILY;
  2. NITRO-DUR 0.4 0.4MG/HOUR (RATED RELEASE IN VIVO) [Concomitant]

REACTIONS (3)
  - Peripheral swelling [Recovered/Resolved]
  - Dry skin [Recovered/Resolved]
  - Localised infection [Recovered/Resolved]
